FAERS Safety Report 6537501-6 (Version None)
Quarter: 2010Q1

REPORT INFORMATION
  Report Type: 
  Country: None (occurrence: None)
  Receive Date: 20100114
  Receipt Date: 20100105
  Transmission Date: 20100710
  Serious: Yes (Other)
  Sender: FDA-Public Use
  Company Number: GB-CELGENEUS-167-20785-10010159

PATIENT
  Age: 50 Year
  Sex: Male

DRUGS (4)
  1. THALOMID [Suspect]
     Indication: MULTIPLE MYELOMA
     Route: 048
  2. THALOMID [Suspect]
     Route: 048
  3. DEXAMETHASONE [Concomitant]
     Indication: DRUG USE FOR UNKNOWN INDICATION
     Route: 065
  4. CLODRONATE DISODIUM [Concomitant]
     Indication: BONE DISORDER
     Route: 065

REACTIONS (1)
  - PHRENIC NERVE PARALYSIS [None]
